FAERS Safety Report 8298561-8 (Version None)
Quarter: 2012Q2

REPORT INFORMATION
  Report Type: 
  Country: None (occurrence: None)
  Receive Date: 20120419
  Receipt Date: 20120402
  Transmission Date: 20120825
  Serious: No
  Sender: FDA-Public Use
  Company Number: US-ABBOTT-12P-163-0902738-00

PATIENT
  Sex: Female
  Weight: 27.558 kg

DRUGS (1)
  1. LUPRON DEPOT-PED [Suspect]
     Indication: PRECOCIOUS PUBERTY
     Dates: start: 20080123, end: 20090606

REACTIONS (3)
  - INJECTION SITE ABSCESS STERILE [None]
  - OEDEMA PERIPHERAL [None]
  - PYREXIA [None]
